FAERS Safety Report 6898309-5 (Version None)
Quarter: 2010Q3

REPORT INFORMATION
  Report Type: 
  Country: None (occurrence: None)
  Receive Date: 20100802
  Receipt Date: 20071012
  Transmission Date: 20110219
  Serious: No
  Sender: FDA-Public Use
  Company Number: US-PFIZER INC-2007067057

PATIENT
  Sex: Female

DRUGS (10)
  1. LYRICA [Suspect]
     Indication: FIBROMYALGIA
  2. REQUIP [Interacting]
     Indication: RESTLESS LEGS SYNDROME
  3. PROZAC [Concomitant]
  4. WELLBUTRIN [Concomitant]
  5. KLONOPIN [Concomitant]
  6. VESICARE [Concomitant]
  7. CARDIZEM [Concomitant]
  8. PROVIGIL [Concomitant]
  9. ACIPHEX [Concomitant]
  10. ZELNORM [Concomitant]

REACTIONS (2)
  - DRUG INTERACTION [None]
  - PAIN [None]
